FAERS Safety Report 12270682 (Version 3)
Quarter: 2016Q3

REPORT INFORMATION
  Report Type: Spontaneous
  Country: US (occurrence: US)
  Receive Date: 20160415
  Receipt Date: 20160811
  Transmission Date: 20161109
  Serious: No
  Sender: FDA-Public Use
  Company Number: US-PFIZER INC-2016201597

PATIENT
  Age: 44 Year
  Sex: Female

DRUGS (2)
  1. IBRANCE [Suspect]
     Active Substance: PALBOCICLIB
     Dosage: 100 MG, CYCLIC (1 CAPSULE BY MOUTH DAILY FOR 21 DAYS, FOLLOWED BY 7 DAYS OFF)
     Route: 048
  2. IBRANCE [Suspect]
     Active Substance: PALBOCICLIB
     Indication: BREAST CANCER
     Dosage: 125 MG, CYCLIC (21 DAYS THEN REST FOR 7 DAYS)
     Route: 048

REACTIONS (3)
  - Fatigue [Unknown]
  - Neutrophil count decreased [Unknown]
  - Blood count abnormal [Unknown]
